FAERS Safety Report 9073730 (Version 1)
Quarter: 2013Q1

REPORT INFORMATION
  Report Type: Spontaneous
  Country: US (occurrence: US)
  Receive Date: 20130129
  Receipt Date: 20130129
  Transmission Date: 20140127
  Serious: Yes (Other)
  Sender: FDA-Public Use
  Company Number: US-ELI_LILLY_AND_COMPANY-US201301008361

PATIENT
  Sex: 0

DRUGS (1)
  1. ADCIRCA [Suspect]

REACTIONS (1)
  - Deafness [Not Recovered/Not Resolved]
